FAERS Safety Report 19167405 (Version 1)
Quarter: 2021Q2

REPORT INFORMATION
  Report Type: Spontaneous
  Country: US (occurrence: US)
  Receive Date: 20210421
  Receipt Date: 20210421
  Transmission Date: 20210717
  Serious: Yes (Hospitalization)
  Sender: FDA-Public Use
  Company Number: None

PATIENT
  Age: 33 Year
  Sex: Female

DRUGS (2)
  1. STELARA [Suspect]
     Active Substance: USTEKINUMAB
     Indication: COLITIS
     Dosage: OTHER FREQUENCY:EVERY 8 WEEKS ;?
     Route: 058
     Dates: start: 20201127
  2. STELARA [Suspect]
     Active Substance: USTEKINUMAB
     Indication: CROHN^S DISEASE
     Dosage: OTHER FREQUENCY:EVERY 8 WEEKS ;?
     Route: 058
     Dates: start: 20201127

REACTIONS (1)
  - Insurance issue [None]

NARRATIVE: CASE EVENT DATE: 20210318
